FAERS Safety Report 10901208 (Version 1)
Quarter: 2015Q1

REPORT INFORMATION
  Report Type: Spontaneous
  Country: US (occurrence: None)
  Receive Date: 20150303
  Receipt Date: 20150303
  Transmission Date: 20150721
  Serious: Yes (Other)
  Sender: FDA-Public Use
  Company Number: ADR-2015-00410

PATIENT
  Age: 60 Year
  Sex: Male

DRUGS (3)
  1. BUPIVACAINE [Concomitant]
     Active Substance: BUPIVACAINE
  2. MARCAINE [Suspect]
     Active Substance: BUPIVACAINE HYDROCHLORIDE
     Indication: PAIN
  3. LIORESAL [Suspect]
     Active Substance: BACLOFEN
     Indication: PAIN

REACTIONS (6)
  - Paraesthesia [None]
  - Musculoskeletal disorder [None]
  - Muscle tightness [None]
  - Mass [None]
  - Pain in extremity [None]
  - Inflammation [None]
